FAERS Safety Report 11319626 (Version 1)
Quarter: 2015Q3

REPORT INFORMATION
  Report Type: Spontaneous
  Country: US (occurrence: None)
  Receive Date: 20150728
  Receipt Date: 20150728
  Transmission Date: 20151125
  Serious: Yes (Other)
  Sender: FDA-Public Use
  Company Number: None

PATIENT
  Age: 55 Year
  Sex: Female
  Weight: 116.12 kg

DRUGS (7)
  1. HYDRACHLORIZIDICIDE [Concomitant]
  2. LIPITOR [Suspect]
     Active Substance: ATORVASTATIN CALCIUM
     Indication: BLOOD CHOLESTEROL INCREASED
     Route: 048
     Dates: start: 20150301, end: 20150707
  3. LANTUS [Concomitant]
     Active Substance: INSULIN GLARGINE
  4. METAPHOR MINE [Concomitant]
  5. NOVALOG [Concomitant]
  6. ACTOS [Concomitant]
     Active Substance: PIOGLITAZONE HYDROCHLORIDE
  7. BENANZAPRIL [Concomitant]

REACTIONS (6)
  - Diarrhoea [None]
  - Constipation [None]
  - Gastrooesophageal reflux disease [None]
  - Muscle spasms [None]
  - Splenomegaly [None]
  - Pain [None]

NARRATIVE: CASE EVENT DATE: 20150601
